FAERS Safety Report 7055209-8 (Version None)
Quarter: 2010Q4

REPORT INFORMATION
  Report Type: 
  Country: None (occurrence: None)
  Receive Date: 20101021
  Receipt Date: 20101013
  Transmission Date: 20110411
  Serious: Yes (Death)
  Sender: FDA-Public Use
  Company Number: US-RANBAXY-2010US-38802

PATIENT

DRUGS (1)
  1. METFORMIN HYDROCHLORIDE [Suspect]
     Indication: HYPERGLYCAEMIA
     Dosage: 500 MG, BID
     Route: 065

REACTIONS (5)
  - HEPATORENAL SYNDROME [None]
  - LACTIC ACIDOSIS [None]
  - MALAISE [None]
  - MULTI-ORGAN FAILURE [None]
  - PARTIAL SEIZURES [None]
